FAERS Safety Report 6302475-X (Version None)
Quarter: 2009Q3

REPORT INFORMATION
  Report Type: 
  Country: None (occurrence: None)
  Receive Date: 20090810
  Receipt Date: 20090806
  Transmission Date: 20100115
  Serious: Yes (Death)
  Sender: FDA-Public Use
  Company Number: CN-ROCHE-648516

PATIENT
  Age: 12 Month
  Sex: Male

DRUGS (1)
  1. ROCEPHIN [Suspect]
     Route: 041
     Dates: start: 20090703, end: 20090703

REACTIONS (1)
  - HAND-FOOT-AND-MOUTH DISEASE [None]
